FAERS Safety Report 8602355 (Version 6)
Quarter: 2012Q4

REPORT INFORMATION
  Report Type: 
  Country: US (occurrence: US)
  Receive Date: 20120607
  Receipt Date: 20121116
  Transmission Date: 20130627
  Serious: Yes (Hospitalization, Other)
  Sender: FDA-Public Use
  Company Number: US-BAYER-2012-055369

PATIENT
  Age: 31 Year
  Sex: Female
  Weight: 76.64 kg

DRUGS (14)
  1. YAZ [Suspect]
     Indication: MENSES IRREGULAR
     Dosage: UNK
     Dates: start: 20071201, end: 201203
  2. YAZ [Suspect]
     Indication: MENSES IRREGULAR
     Dosage: UNK
     Dates: start: 200702, end: 201112
  3. PROZAC [Concomitant]
     Dosage: 20mg 1 capsule daily
     Route: 048
  4. FLUOXETINE HCL [Concomitant]
     Dosage: 20 mg, UNK
  5. OXYCODONE/APAP [Concomitant]
     Dosage: 5-500
     Dates: start: 20110916, end: 20111020
  6. CIPROFLOXACIN HCL [Concomitant]
     Dosage: 500 mg, UNK
     Dates: start: 20110916
  7. TAMSULOSIN HYDROCHLORIDE [Concomitant]
     Dosage: 0.4 mg, UNK
     Dates: start: 20110916
  8. PROMETHAZINE [Concomitant]
     Dosage: 25 mg, UNK
     Dates: start: 20110916, end: 20110921
  9. NITROFURANTOIN [Concomitant]
     Dosage: 100 mg, UNK
     Dates: start: 20110921
  10. FLUTICASONE [Concomitant]
     Dosage: 50mcg spray
     Dates: start: 20111117
  11. CETIRIZINE HYDROCHLORIDE [Concomitant]
     Dosage: 100 mg, UNK
     Dates: start: 20111118
  12. ERGOCALCIFEROL [Concomitant]
     Dosage: 50,000 units 1 cap weekly
     Route: 048
  13. TRIAMCINOLONE ACETATE [Concomitant]
     Dosage: 0.1% bid (interpreted as twice per day) as needed
  14. TYLENOL PM [Concomitant]
     Indication: PAIN

REACTIONS (26)
  - Menstrual disorder [None]
  - Presyncope [None]
  - Abdominal distension [None]
  - Nausea [None]
  - Back pain [None]
  - Abdominal pain [None]
  - Vomiting [None]
  - Nausea [None]
  - Diarrhoea [None]
  - Mobility decreased [None]
  - Dysstasia [None]
  - Abasia [None]
  - Hyperhidrosis [None]
  - Pain [None]
  - General physical health deterioration [None]
  - Emotional distress [None]
  - Injury [None]
  - Anhedonia [None]
  - Anxiety [None]
  - Pain [None]
  - Cholecystitis chronic [None]
  - Bile duct stone [None]
  - Thrombosis [None]
  - Pulmonary embolism [None]
  - Nephrolithiasis [None]
  - Haemorrhage urinary tract [None]
